FAERS Safety Report 13229444 (Version 1)
Quarter: 2017Q1

REPORT INFORMATION
  Report Type: Spontaneous
  Country: US (occurrence: US)
  Receive Date: 20170214
  Receipt Date: 20170214
  Transmission Date: 20170428
  Serious: Yes (Disabling)
  Sender: FDA-Public Use
  Company Number: US-ROCHE-1891219

PATIENT
  Age: 71 Year
  Sex: Female
  Weight: 70.82 kg

DRUGS (2)
  1. BISOPROLOL/HYDROCHLOROTHIAZIDE [Concomitant]
     Active Substance: BISOPROLOL FUMARATE\HYDROCHLOROTHIAZIDE
     Indication: HYPERTENSION
     Dosage: AM
     Route: 048
     Dates: start: 20161107
  2. XOLAIR [Suspect]
     Active Substance: OMALIZUMAB
     Indication: CHRONIC SPONTANEOUS URTICARIA
     Dosage: YES
     Route: 058
     Dates: start: 201512, end: 201702

REACTIONS (2)
  - Arthralgia [Unknown]
  - Arthritis [Unknown]

NARRATIVE: CASE EVENT DATE: 20170112
